FAERS Safety Report 5939815-7 (Version None)
Quarter: 2008Q4

REPORT INFORMATION
  Report Type: 
  Country: None (occurrence: None)
  Receive Date: 20081031
  Receipt Date: 20081031
  Transmission Date: 20090506
  Serious: Yes (Hospitalization)
  Sender: FDA-Public Use
  Company Number: None

PATIENT
  Age: 76 Year
  Sex: Female
  Weight: 68 kg

DRUGS (8)
  1. DIGITEK 0.25MG MYLAN [Suspect]
     Dosage: 0.25MG DAILY DAILY ORAL
     Route: 048
  2. TORSEMIDE [Concomitant]
  3. DILTIAZEM XR [Concomitant]
  4. CIPROFLOXACIN [Concomitant]
  5. PANTOPRAZOLE SODIUM [Concomitant]
  6. INDOMETHACIN [Concomitant]
  7. LOPRESSOR [Concomitant]
  8. CYCLOSPORINE [Concomitant]

REACTIONS (2)
  - HEART RATE DECREASED [None]
  - PRODUCT QUALITY ISSUE [None]
